FAERS Safety Report 21932365 (Version 1)
Quarter: 2023Q1

REPORT INFORMATION
  Report Type: Spontaneous
  Country: FR (occurrence: FR)
  Receive Date: 20230131
  Receipt Date: 20230131
  Transmission Date: 20230417
  Serious: Yes (Hospitalization)
  Sender: FDA-Public Use
  Company Number: FR-JNJFOC-20230145520

PATIENT
  Age: 67 Year
  Sex: Male

DRUGS (2)
  1. SPRAVATO [Suspect]
     Active Substance: ESKETAMINE
     Indication: Depression
     Dosage: FIRST SESSION
  2. SPRAVATO [Suspect]
     Active Substance: ESKETAMINE
     Dosage: NEXT THREE SESSIONS

REACTIONS (4)
  - Catatonia [Unknown]
  - Urinary incontinence [Unknown]
  - Food refusal [Unknown]
  - Treatment noncompliance [Unknown]
